FAERS Safety Report 15258045 (Version 2)
Quarter: 2018Q3

REPORT INFORMATION
  Report Type: Spontaneous
  Country: IL (occurrence: IL)
  Receive Date: 20180809
  Receipt Date: 20180905
  Transmission Date: 20181010
  Serious: Yes (Other)
  Sender: FDA-Public Use
  Company Number: IL-ROCHE-2166605

PATIENT
  Age: 68 Year
  Sex: Female

DRUGS (7)
  1. LERCAPRESS (ISRAEL) [Concomitant]
  2. MICROPIRIN [Concomitant]
     Active Substance: ASPIRIN
  3. ELTROXIN [Concomitant]
     Active Substance: LEVOTHYROXINE
  4. ZELBORAF [Suspect]
     Active Substance: VEMURAFENIB
     Indication: METASTATIC MALIGNANT MELANOMA
     Route: 065
     Dates: start: 201507
  5. CARDILOC [Concomitant]
     Active Substance: BISOPROLOL FUMARATE
  6. SERTRALINE [Concomitant]
     Active Substance: SERTRALINE HYDROCHLORIDE
  7. COTELLIC [Suspect]
     Active Substance: COBIMETINIB
     Indication: METASTATIC MALIGNANT MELANOMA
     Route: 065
     Dates: start: 201507

REACTIONS (1)
  - Adenocarcinoma pancreas [Unknown]

NARRATIVE: CASE EVENT DATE: 201605
